FAERS Safety Report 12694287 (Version 14)
Quarter: 2017Q2

REPORT INFORMATION
  Report Type: Spontaneous
  Country: US (occurrence: US)
  Receive Date: 20160829
  Receipt Date: 20170526
  Transmission Date: 20170830
  Serious: Yes (Hospitalization, Other)
  Sender: FDA-Public Use
  Company Number: US-PFIZER INC-2016374650

PATIENT
  Age: 74 Year
  Sex: Male
  Weight: 71 kg

DRUGS (26)
  1. SUTENT [Suspect]
     Active Substance: SUNITINIB MALATE
     Dosage: 37.5 MG, CYCLIC (37.5 MG - 2 WEEKS ON/1 WEEK OFF) (37.5MG / (3)12.5MG CAPS ALL AT ONCE FOR 2 WEEKS)
     Dates: start: 20161201
  2. SUTENT [Suspect]
     Active Substance: SUNITINIB MALATE
     Dosage: UNK
     Dates: start: 20170101
  3. ATIVAN [Concomitant]
     Active Substance: LORAZEPAM
     Dosage: UNK
  4. POTASSIUM CHLORIDE. [Concomitant]
     Active Substance: POTASSIUM CHLORIDE
     Dosage: 20 MEQ, 2X/DAY (FOR 4 DAYS)
     Route: 048
  5. SUTENT [Suspect]
     Active Substance: SUNITINIB MALATE
     Dosage: 37.5 MG, CYCLIC (2 WEEKS ON/1 WEEK OFF)
     Dates: start: 20160810, end: 20160824
  6. XARELTO [Concomitant]
     Active Substance: RIVAROXABAN
     Dosage: UNK
  7. CLARITIN [Concomitant]
     Active Substance: LORATADINE
     Dosage: UNK
  8. NORCO [Concomitant]
     Active Substance: ACETAMINOPHEN\HYDROCODONE BITARTRATE
     Dosage: UNK
  9. PROTONIX [Concomitant]
     Active Substance: PANTOPRAZOLE SODIUM
     Dosage: 40 MG, UNK
     Route: 048
  10. DILTIAZEM. [Concomitant]
     Active Substance: DILTIAZEM
     Dosage: 240 MG, DAILY(/24 HOURS)
     Route: 048
  11. RAPAFLO [Concomitant]
     Active Substance: SILODOSIN
     Dosage: UNK
  12. FLOMAX [Concomitant]
     Active Substance: TAMSULOSIN HYDROCHLORIDE
     Dosage: UNK
  13. IBUPROFEN. [Concomitant]
     Active Substance: IBUPROFEN
     Dosage: UNK
  14. FLOMAX [Concomitant]
     Active Substance: TAMSULOSIN HYDROCHLORIDE
     Dosage: 0.4 MG, 1X/DAY (ONCE A DAY IN THE EVENING)
     Route: 048
  15. SUTENT [Suspect]
     Active Substance: SUNITINIB MALATE
     Dosage: 12.5 MG, CYCLIC (1 CAPSULE 3 X^S A DAY- 2 WEEKS ON/1 WEEK OFF)
     Dates: start: 20160810, end: 20160824
  16. BENADRYL [Concomitant]
     Active Substance: DIPHENHYDRAMINE HYDROCHLORIDE
     Dosage: UNK
  17. SUTENT [Suspect]
     Active Substance: SUNITINIB MALATE
     Indication: METASTATIC RENAL CELL CARCINOMA
     Dosage: 37.5 MG, CYCLIC (12.5 MG THREE TIMES A DAY TO EQUAL TOTAL DOSE OF 37.5MG FOR 2 WEEKS ON AND 1 WEEK)
     Dates: start: 20160810, end: 20160824
  18. SUTENT [Suspect]
     Active Substance: SUNITINIB MALATE
     Dosage: 37.5 MG, CYCLIC [10 DAYS ON AND 7 DAYS OFF]
     Dates: start: 20160824, end: 20161201
  19. SUTENT [Suspect]
     Active Substance: SUNITINIB MALATE
     Dosage: 37.5 MG, CYCLIC (DAILY FOR 10 DAYS ON AND 7 DAYS OFF)
     Dates: start: 20161201
  20. SOLU-CORTEF [Concomitant]
     Active Substance: HYDROCORTISONE SODIUM SUCCINATE
     Dosage: 125 MG, UNK (ONCE IN EMERGENCY)
     Route: 030
  21. ZOFRAN [Concomitant]
     Active Substance: ONDANSETRON HYDROCHLORIDE
     Dosage: UNK
  22. ONDANSETRON [Concomitant]
     Active Substance: ONDANSETRON
     Dosage: UNK
  23. SUTENT [Suspect]
     Active Substance: SUNITINIB MALATE
     Dosage: 37.5 MG, CYCLIC (1 WEEK ON / 1 WEEK OFF)
     Dates: start: 20161201
  24. FLONASE [Concomitant]
     Active Substance: FLUTICASONE PROPIONATE
     Dosage: UNK
     Route: 045
  25. FLEXERIL [Concomitant]
     Active Substance: CYCLOBENZAPRINE HYDROCHLORIDE
     Dosage: UNK
  26. HYDROCORTISONE. [Concomitant]
     Active Substance: HYDROCORTISONE
     Indication: ADRENAL INSUFFICIENCY
     Dosage: 25 MG, ( 10 MG , 2 TABLET IN AM, 1/2 IN PM)
     Route: 048

REACTIONS (40)
  - Product use in unapproved indication [Unknown]
  - Paraesthesia [Unknown]
  - Somnolence [Unknown]
  - Pancreatic disorder [Unknown]
  - Hypoaesthesia [Unknown]
  - Dry skin [Unknown]
  - Skin hypertrophy [Unknown]
  - Skin burning sensation [Unknown]
  - Musculoskeletal pain [Unknown]
  - Insomnia [Not Recovered/Not Resolved]
  - Tremor [Unknown]
  - Nasal congestion [Unknown]
  - Blood sodium decreased [Unknown]
  - Weight decreased [Recovering/Resolving]
  - Neck pain [Not Recovered/Not Resolved]
  - Pyrexia [Unknown]
  - Nausea [Recovered/Resolved]
  - Vomiting [Unknown]
  - Microangiopathy [Unknown]
  - Cervical spinal stenosis [Unknown]
  - Eating disorder [Recovering/Resolving]
  - Weight increased [Unknown]
  - Deafness [Unknown]
  - Pain in extremity [Unknown]
  - Pruritus [Not Recovered/Not Resolved]
  - Vision blurred [Not Recovered/Not Resolved]
  - Fatigue [Unknown]
  - Palmar-plantar erythrodysaesthesia syndrome [Unknown]
  - Feeling abnormal [Unknown]
  - Cataract [Unknown]
  - Dry mouth [Unknown]
  - Blood creatinine increased [Unknown]
  - Diarrhoea [Not Recovered/Not Resolved]
  - Dizziness [Not Recovered/Not Resolved]
  - Sciatica [Unknown]
  - Malaise [Unknown]
  - Overdose [Unknown]
  - Back pain [Unknown]
  - Rash [Unknown]
  - Headache [Not Recovered/Not Resolved]
